FAERS Safety Report 14078656 (Version 1)
Quarter: 2017Q4

REPORT INFORMATION
  Report Type: Spontaneous
  Country: JP (occurrence: JP)
  Receive Date: 20171012
  Receipt Date: 20171012
  Transmission Date: 20180321
  Serious: Yes (Other)
  Sender: FDA-Public Use
  Company Number: JP-STRIDES ARCOLAB LIMITED-2017SP013210

PATIENT

DRUGS (1)
  1. TACROLIMUS. [Suspect]
     Active Substance: TACROLIMUS
     Indication: PRODUCT USED FOR UNKNOWN INDICATION
     Dosage: UNK, MATERNAL DOSE WAS 1.5MG/DAY
     Route: 064

REACTIONS (3)
  - Low birth weight baby [Unknown]
  - Premature baby [Unknown]
  - Foetal exposure during pregnancy [Unknown]
